FAERS Safety Report 25266975 (Version 1)
Quarter: 2025Q2

REPORT INFORMATION
  Report Type: Spontaneous
  Country: US (occurrence: US)
  Receive Date: 20250505
  Receipt Date: 20250505
  Transmission Date: 20250716
  Serious: No
  Sender: AMGEN
  Company Number: US-AMGEN-USASP2025086803

PATIENT
  Sex: Male

DRUGS (6)
  1. OTEZLA [Suspect]
     Active Substance: APREMILAST
     Indication: Psoriasis
     Dosage: 30 MILLIGRAM, BID
     Route: 048
     Dates: start: 20240130
  2. ATORVASTATIN [Concomitant]
     Active Substance: ATORVASTATIN
  3. DUTASTERIDE [Concomitant]
     Active Substance: DUTASTERIDE
  4. TAMSULOSIN [Concomitant]
     Active Substance: TAMSULOSIN
  5. TRETINOIN [Concomitant]
     Active Substance: TRETINOIN
  6. Triamcinolon [Concomitant]

REACTIONS (2)
  - Headache [Unknown]
  - Therapy non-responder [Unknown]
